FAERS Safety Report 10192090 (Version 1)
Quarter: 2014Q2

REPORT INFORMATION
  Report Type: Spontaneous
  Country: US (occurrence: None)
  Receive Date: 20140522
  Receipt Date: 20140522
  Transmission Date: 20141212
  Serious: Yes (Other)
  Sender: FDA-Public Use
  Company Number: None

PATIENT
  Age: 54 Year
  Sex: Female

DRUGS (1)
  1. OXYCODONE [Suspect]
     Indication: PAIN
     Dosage: 1 TABLET, EVERY 6 HOURS PRN, ORAL
     Route: 048
     Dates: start: 20140326, end: 20140401

REACTIONS (4)
  - Product substitution issue [None]
  - Product quality issue [None]
  - Dizziness [None]
  - Drug ineffective [None]
